FAERS Safety Report 7072250-X (Version None)
Quarter: 2010Q4

REPORT INFORMATION
  Report Type: 
  Country: None (occurrence: None)
  Receive Date: 20101029
  Receipt Date: 20101019
  Transmission Date: 20110411
  Serious: Yes (Other)
  Sender: FDA-Public Use
  Company Number: US-JNJFOC-20101005353

PATIENT
  Sex: Female

DRUGS (1)
  1. REMICADE [Suspect]
     Indication: CROHN'S DISEASE
     Dosage: 5 MG/KG; TOTAL 6 DOSES
     Route: 042

REACTIONS (3)
  - ARTHRALGIA [None]
  - MYALGIA [None]
  - NERVE INJURY [None]
